FAERS Safety Report 10249275 (Version 2)
Quarter: 2014Q2

REPORT INFORMATION
  Report Type: Spontaneous
  Country: US (occurrence: US)
  Receive Date: 20140620
  Receipt Date: 20140630
  Transmission Date: 20141212
  Serious: Yes (Other)
  Sender: FDA-Public Use
  Company Number: US-TEVA-489816USA

PATIENT
  Age: 18 Year
  Sex: Female
  Weight: 95.34 kg

DRUGS (1)
  1. TAKE ACTION [Suspect]
     Indication: POST COITAL CONTRACEPTION
     Dosage: 1.5 MILLIGRAM DAILY;
     Route: 048
     Dates: start: 20140616, end: 20140616

REACTIONS (7)
  - Pregnancy after post coital contraception [Unknown]
  - Pain in extremity [Unknown]
  - Back pain [Unknown]
  - Exposure during pregnancy [Unknown]
  - Fatigue [Unknown]
  - Menstruation irregular [Unknown]
  - Dysmenorrhoea [Unknown]
